FAERS Safety Report 9691289 (Version 1)
Quarter: 2013Q4

REPORT INFORMATION
  Report Type: Spontaneous
  Country: US (occurrence: US)
  Receive Date: 20131115
  Receipt Date: 20131115
  Transmission Date: 20140711
  Serious: Yes (Other)
  Sender: FDA-Public Use
  Company Number: US-BAYER-2013-138629

PATIENT
  Age: 40 Year
  Sex: Female
  Weight: 57.6 kg

DRUGS (6)
  1. YAZ [Suspect]
     Route: 048
  2. OXYCODONE/APAP [Concomitant]
     Dosage: UNK
  3. METRONIDAZOLE [Concomitant]
     Dosage: 0.75 %, UNK
  4. NAPROXEN [Concomitant]
     Dosage: 500 MG, UNK
  5. DILAUDID [Concomitant]
     Indication: HEADACHE
  6. MORPHINE [Concomitant]

REACTIONS (1)
  - Cerebral infarction [None]
